FAERS Safety Report 25019960 (Version 1)
Quarter: 2025Q1

REPORT INFORMATION
  Report Type: Spontaneous
  Country: US (occurrence: US)
  Receive Date: 20250227
  Receipt Date: 20250227
  Transmission Date: 20250409
  Serious: Yes (Other)
  Sender: Hindustan Unilever
  Company Number: US-Hindustan Unilever Limited-2171893

PATIENT
  Age: 51 Year
  Sex: Male

DRUGS (1)
  1. DOVE ADVANCED CARE ORIGINAL CLEAN ANTIPERSPIRANT AND DEODORANT [Suspect]
     Active Substance: ALUMINUM ZIRCONIUM TETRACHLOROHYDREX GLY
     Dates: start: 20250117, end: 20250124

REACTIONS (4)
  - Skin discolouration [Not Recovered/Not Resolved]
  - Chemical burn [Not Recovered/Not Resolved]
  - Application site pruritus [Not Recovered/Not Resolved]
  - Application site irritation [Not Recovered/Not Resolved]

NARRATIVE: CASE EVENT DATE: 20250124
